FAERS Safety Report 4424050-4 (Version None)
Quarter: 2004Q3

REPORT INFORMATION
  Report Type: 
  Country: None (occurrence: None)
  Receive Date: 20040805
  Receipt Date: 20040727
  Transmission Date: 20050211
  Serious: Yes (Other)
  Sender: FDA-Public Use
  Company Number: HQWYE478027JUL04

PATIENT
  Age: 32 Year
  Sex: Female

DRUGS (5)
  1. TRIQUILAR-21           (LEVONORGESTREL/ETHINYL, ESTRADIOL) [Suspect]
     Dosage: 1 TABLET 1X PER 1 DAY ORAL
     Route: 048
     Dates: start: 20020627, end: 20021112
  2. LIMAS (LITHIUM CARBONATE) [Concomitant]
  3. DEPAS (ETIZOLAM) [Concomitant]
  4. TROFRANIL (IMIPRAMINE HYDROCHLORIDE) [Concomitant]
  5. HALCION [Concomitant]

REACTIONS (2)
  - AFFECTIVE DISORDER [None]
  - BREAST PAIN [None]
